FAERS Safety Report 5221759-X (Version None)
Quarter: 2007Q1

REPORT INFORMATION
  Report Type: 
  Country: None (occurrence: None)
  Receive Date: 20070129
  Receipt Date: 20070112
  Transmission Date: 20070707
  Serious: Yes (Hospitalization)
  Sender: FDA-Public Use
  Company Number: US-JNJFOC-20070103439

PATIENT
  Age: 30 Year
  Sex: Male

DRUGS (6)
  1. FENTANYL [Suspect]
     Indication: DRUG USE FOR UNKNOWN INDICATION
     Route: 048
  2. WARFARIN SODIUM [Concomitant]
     Route: 065
  3. PHENYTOIN [Concomitant]
     Route: 065
  4. PROTON PUMP INHIBITOR [Concomitant]
     Route: 065
  5. BENZODIAZEPINE [Concomitant]
     Route: 065
  6. SELECTIVE SEROTONIN REUPTAKE INHIBITOR [Concomitant]
     Route: 065

REACTIONS (2)
  - INTENTIONAL DRUG MISUSE [None]
  - SUICIDAL IDEATION [None]
